FAERS Safety Report 9422228 (Version 2)
Quarter: 2013Q3

REPORT INFORMATION
  Report Type: Spontaneous
  Country: US (occurrence: US)
  Receive Date: 20130726
  Receipt Date: 20130926
  Transmission Date: 20140515
  Serious: Yes (Death, Hospitalization)
  Sender: FDA-Public Use
  Company Number: US-PFIZER INC-2013216115

PATIENT
  Age: 67 Year
  Sex: Male

DRUGS (7)
  1. SUTENT [Suspect]
     Indication: RENAL CANCER
     Dosage: 12.5 MG, UNK
     Dates: start: 20130131
  2. CENTRUM SILVER [Concomitant]
     Dosage: UNK
  3. OXYCODONE HYDROCHLORIDE [Concomitant]
     Dosage: UNK
  4. GLIPIZIDE [Concomitant]
     Dosage: UNK
  5. GABAPENTIN [Concomitant]
     Dosage: UNK
  6. CARVEDILOL [Concomitant]
     Dosage: UNK
  7. TYLENOL EXTRA-STRENGTH [Concomitant]
     Dosage: UNK

REACTIONS (2)
  - Death [Fatal]
  - Gallbladder disorder [Unknown]
